FAERS Safety Report 10142923 (Version 2)
Quarter: 2014Q2

REPORT INFORMATION
  Report Type: Report from Study
  Country: US (occurrence: US)
  Receive Date: 20140430
  Receipt Date: 20140530
  Transmission Date: 20141212
  Serious: No
  Sender: FDA-Public Use
  Company Number: US-ROCHE-1390862

PATIENT
  Age: 12 Year
  Sex: Male
  Weight: 41.6 kg

DRUGS (3)
  1. NUTROPIN AQ [Suspect]
     Indication: GROWTH HORMONE DEFICIENCY
     Route: 058
     Dates: start: 20130520
  2. NUTROPIN AQ [Suspect]
     Indication: DELAYED PUBERTY
     Route: 058
     Dates: start: 201306
  3. NUTROPIN AQ [Suspect]
     Indication: BODY HEIGHT BELOW NORMAL

REACTIONS (3)
  - Attention deficit/hyperactivity disorder [Unknown]
  - Arthralgia [Recovered/Resolved]
  - Drug dose omission [Unknown]
